FAERS Safety Report 11200085 (Version 1)
Quarter: 2015Q2

REPORT INFORMATION
  Report Type: Report from Study
  Country: US (occurrence: US)
  Receive Date: 20150618
  Receipt Date: 20150618
  Transmission Date: 20150821
  Serious: Yes (Other)
  Sender: FDA-Public Use
  Company Number: US-BAYER-2014-187583

PATIENT
  Age: 72 Year
  Sex: Female

DRUGS (7)
  1. ASPIRIN. [Concomitant]
     Active Substance: ASPIRIN
  2. ADEMPAS [Suspect]
     Active Substance: RIOCIGUAT
     Indication: PULMONARY ARTERIAL HYPERTENSION
     Dosage: 1 MG, TID
     Route: 048
     Dates: start: 20141204
  3. ADEMPAS [Suspect]
     Active Substance: RIOCIGUAT
     Indication: PULMONARY ARTERIAL HYPERTENSION
     Dosage: 2 MG, TID
     Route: 048
  4. ADEMPAS [Suspect]
     Active Substance: RIOCIGUAT
     Indication: PULMONARY ARTERIAL HYPERTENSION
     Dosage: 2.5 MG, TID (SHIPPED ON 09-MAR-2015)
     Route: 048
  5. ADEMPAS [Suspect]
     Active Substance: RIOCIGUAT
     Indication: PULMONARY ARTERIAL HYPERTENSION
     Dosage: 2 MG, TID
     Route: 048
     Dates: start: 20141204
  6. ADEMPAS [Suspect]
     Active Substance: RIOCIGUAT
     Indication: PULMONARY ARTERIAL HYPERTENSION
     Dosage: 2 MG, TID
     Route: 048
  7. TRACLEER [Concomitant]
     Active Substance: BOSENTAN\BOSENTAN MONOHYDRATE
     Dosage: UNK

REACTIONS (18)
  - Drug dose omission [None]
  - Dyspnoea [Unknown]
  - Dizziness [Unknown]
  - Gastroenteritis [Unknown]
  - Malaise [None]
  - Dehydration [Unknown]
  - Urinary tract infection [Recovered/Resolved]
  - Dry mouth [Unknown]
  - Fluid retention [Unknown]
  - Oxygen supplementation [Unknown]
  - Nausea [Unknown]
  - Drug dose omission [Unknown]
  - Feeling abnormal [Unknown]
  - Vomiting [Unknown]
  - Dyspepsia [Unknown]
  - Gastritis [Unknown]
  - Nausea [None]
  - Hypotension [Unknown]

NARRATIVE: CASE EVENT DATE: 201506
